FAERS Safety Report 20688936 (Version 1)
Quarter: 2022Q2

REPORT INFORMATION
  Report Type: Spontaneous
  Country: US (occurrence: None)
  Receive Date: 20220407
  Receipt Date: 20220407
  Transmission Date: 20220721
  Serious: No
  Sender: FDA-Public Use
  Company Number: None

PATIENT
  Age: 40 Year
  Sex: Male
  Weight: 90.72 kg

DRUGS (3)
  1. GAMUNEX-C [Suspect]
     Active Substance: HUMAN IMMUNOGLOBULIN G
     Indication: Immunodeficiency common variable
     Dosage: OTHER FREQUENCY : Q4 WEEKS;?
     Route: 041
     Dates: start: 20220406, end: 20220406
  2. GAMUNEX-C [Suspect]
     Active Substance: HUMAN IMMUNOGLOBULIN G
     Dosage: OTHER FREQUENCY : Q4W;?
     Route: 042
  3. GAMUNEX-C [Concomitant]
     Active Substance: HUMAN IMMUNOGLOBULIN G
     Dates: start: 20220406, end: 20220406

REACTIONS (4)
  - Headache [None]
  - Nausea [None]
  - Vomiting [None]
  - Pruritus [None]

NARRATIVE: CASE EVENT DATE: 20220406
